FAERS Safety Report 4666111-0 (Version None)
Quarter: 2005Q2

REPORT INFORMATION
  Report Type: 
  Country: None (occurrence: None)
  Receive Date: 20050519
  Receipt Date: 20041214
  Transmission Date: 20051028
  Serious: Yes (Other)
  Sender: FDA-Public Use
  Company Number: PHEH2004US13301

PATIENT
  Age: 71 Year
  Sex: Female

DRUGS (2)
  1. CHEMOTHERAPEUTICS,OTHER [Concomitant]
  2. AREDIA [Suspect]
     Indication: METASTASES TO BONE
     Dosage: 90 MG, UNK
     Dates: start: 19991103, end: 20040119

REACTIONS (9)
  - ABSCESS [None]
  - ABSCESS JAW [None]
  - BONE DEBRIDEMENT [None]
  - INCISIONAL DRAINAGE [None]
  - INFECTION [None]
  - OSTEONECROSIS [None]
  - PRIMARY SEQUESTRUM [None]
  - TOOTH EXTRACTION [None]
  - WOUND DEBRIDEMENT [None]
